FAERS Safety Report 9418251 (Version 1)
Quarter: 2013Q3

REPORT INFORMATION
  Report Type: Spontaneous
  Country: FR (occurrence: FR)
  Receive Date: 20130724
  Receipt Date: 20130724
  Transmission Date: 20140515
  Serious: Yes (Hospitalization)
  Sender: FDA-Public Use
  Company Number: FR-GILEAD-2013-0079553

PATIENT
  Age: 22 Year
  Sex: Female

DRUGS (2)
  1. TRUVADA [Suspect]
     Indication: PROPHYLAXIS
     Dosage: UNK
     Route: 048
     Dates: start: 20130515, end: 20130531
  2. KALETRA [Suspect]
     Indication: PROPHYLAXIS
     Dosage: UNK
     Route: 048
     Dates: start: 20130515, end: 20130531

REACTIONS (1)
  - Erythema multiforme [Recovered/Resolved]
